FAERS Safety Report 8781632 (Version 5)
Quarter: 2012Q4

REPORT INFORMATION
  Report Type: 
  Country: US (occurrence: US)
  Receive Date: 20120914
  Receipt Date: 20121214
  Transmission Date: 20130627
  Serious: Yes (Hospitalization)
  Sender: FDA-Public Use
  Company Number: US-VERTEX PHARMACEUTICAL INC.-AE-2012-011297

PATIENT
  Age: 53 Year
  Sex: Female
  Weight: 102 kg

DRUGS (15)
  1. INCIVEK [Suspect]
     Indication: HEPATITIS C
     Dosage: 750 mg, tid
     Route: 048
     Dates: start: 20120726, end: 20121108
  2. COPEGUS [Suspect]
     Indication: HEPATITIS C
     Dosage: 600 mg, bid
     Route: 048
     Dates: start: 20120726, end: 20121109
  3. COPEGUS [Suspect]
     Dosage: 400 mg, bid
     Route: 048
  4. PEGASYS [Suspect]
     Indication: HEPATITIS C
     Dosage: 180 ?g, weekly
     Route: 058
     Dates: start: 20120726, end: 20121108
  5. PEGASYS [Suspect]
     Dosage: 100 ?g, weekly
     Route: 058
  6. PEGASYS [Suspect]
     Dosage: 90 ?g, weekly
     Route: 058
  7. CLONIDINE [Concomitant]
     Indication: HYPERTENSION
     Dosage: 0.1 mg, bid
     Route: 048
  8. LISINOPRIL [Concomitant]
     Indication: HYPERTENSION
     Dosage: 5 mg, qd
     Route: 048
  9. FUROSEMIDE [Concomitant]
     Indication: HYPERTENSION
     Dosage: 20 mg, qd
     Route: 048
  10. HYDROCODONE [Concomitant]
     Dosage: 335 mg, prn
     Route: 048
  11. GABAPENTIN [Concomitant]
     Indication: NEURALGIA
     Dosage: 300 mg, bid
     Route: 048
  12. ROBAXIN [Concomitant]
     Indication: MYALGIA
     Dosage: 1500 mg, bid
     Route: 048
  13. BENADRYL                           /00000402/ [Concomitant]
     Indication: HYPERSENSITIVITY
     Dosage: 50 mg, bid
     Route: 048
  14. MULTIVITAMIN                       /00097801/ [Concomitant]
     Dosage: 1 DF, qd
     Route: 048
  15. MELATONIN [Concomitant]
     Dosage: UNK, qd
     Route: 048

REACTIONS (28)
  - Pancreatic disorder [Not Recovered/Not Resolved]
  - Back pain [Not Recovered/Not Resolved]
  - Nausea [Not Recovered/Not Resolved]
  - Incorrect dose administered [Unknown]
  - Pneumonia [Not Recovered/Not Resolved]
  - White blood cell count decreased [Unknown]
  - Vulvovaginal burning sensation [Not Recovered/Not Resolved]
  - Epistaxis [Not Recovered/Not Resolved]
  - Pyrexia [Not Recovered/Not Resolved]
  - Headache [Not Recovered/Not Resolved]
  - Sinus headache [Not Recovered/Not Resolved]
  - Visual impairment [Recovered/Resolved]
  - Ear pain [Not Recovered/Not Resolved]
  - Oral mucosal blistering [Not Recovered/Not Resolved]
  - Oropharyngeal pain [Not Recovered/Not Resolved]
  - Pain in extremity [Not Recovered/Not Resolved]
  - Weight increased [Unknown]
  - Constipation [Not Recovered/Not Resolved]
  - Cough [Not Recovered/Not Resolved]
  - Oedema peripheral [Not Recovered/Not Resolved]
  - Oral candidiasis [Unknown]
  - Rash generalised [Not Recovered/Not Resolved]
  - Red blood cell count decreased [Unknown]
  - Platelet count decreased [Recovered/Resolved]
  - Swelling [Not Recovered/Not Resolved]
  - Lip swelling [Not Recovered/Not Resolved]
  - Pruritus [Not Recovered/Not Resolved]
  - Diarrhoea [Not Recovered/Not Resolved]
